FAERS Safety Report 4285142-6 (Version None)
Quarter: 2004Q1

REPORT INFORMATION
  Report Type: 
  Country: None (occurrence: None)
  Receive Date: 20040204
  Receipt Date: 20040129
  Transmission Date: 20041129
  Serious: Yes (Hospitalization)
  Sender: FDA-Public Use
  Company Number: US-BRISTOL-MYERS SQUIBB COMPANY-12491312

PATIENT
  Age: 41 Year
  Sex: Male
  Weight: 127 kg

DRUGS (4)
  1. GLUCOPHAGE [Suspect]
     Indication: DIABETES MELLITUS
     Route: 048
     Dates: start: 20011201, end: 20030301
  2. UNIVASC [Concomitant]
  3. FUROSEMIDE [Concomitant]
  4. POTASSIUM SUPPLEMENT [Concomitant]

REACTIONS (6)
  - BLOOD GLUCOSE INCREASED [None]
  - CARDIOMEGALY [None]
  - DIABETES MELLITUS INADEQUATE CONTROL [None]
  - DYSPNOEA [None]
  - INSOMNIA [None]
  - OEDEMA PERIPHERAL [None]
